FAERS Safety Report 9966219 (Version 1)
Quarter: 2014Q1

REPORT INFORMATION
  Report Type: Report from Study
  Country: US (occurrence: US)
  Receive Date: 20140305
  Receipt Date: 20140305
  Transmission Date: 20141002
  Serious: Yes (Other)
  Sender: FDA-Public Use
  Company Number: US-ABBVIE-13P-163-1123129-00

PATIENT
  Sex: Female

DRUGS (6)
  1. HUMIRA [Suspect]
     Indication: RHEUMATOID ARTHRITIS
     Dates: start: 2009
  2. LORTAB [Concomitant]
     Indication: RHEUMATOID ARTHRITIS
     Dosage: 3 TO 4 DAILY, AS NEEDED
  3. LORTAB [Concomitant]
     Indication: BACK PAIN
  4. FLEXERIL [Concomitant]
     Indication: MUSCLE SPASMS
     Dosage: 2 TO 3 DAILY, AS NEEDED
  5. WELLBUTRIN [Concomitant]
     Indication: DEPRESSION
  6. NAPROXEN [Concomitant]
     Indication: RHEUMATOID ARTHRITIS

REACTIONS (4)
  - Spinal fusion surgery [Recovered/Resolved]
  - Mammoplasty [Unknown]
  - Ear infection [Unknown]
  - Fatigue [Unknown]
